FAERS Safety Report 13109952 (Version 1)
Quarter: 2017Q1

REPORT INFORMATION
  Report Type: Spontaneous
  Country: US (occurrence: US)
  Receive Date: 20170112
  Receipt Date: 20170112
  Transmission Date: 20170428
  Serious: Yes (Other)
  Sender: FDA-Public Use
  Company Number: US-ROCHE-1097729

PATIENT
  Age: 63 Year
  Sex: Female

DRUGS (14)
  1. HEPARIN [Concomitant]
     Active Substance: HEPARIN SODIUM
     Dosage: 1000U
     Route: 065
  2. LIDOCAIN [Concomitant]
     Active Substance: LIDOCAINE
     Route: 040
  3. ACTIVASE [Suspect]
     Active Substance: ALTEPLASE
     Route: 065
  4. HEPARIN [Concomitant]
     Active Substance: HEPARIN SODIUM
     Dosage: 5000U
     Route: 040
  5. RIOPAN [Concomitant]
     Active Substance: MAGALDRATE
     Route: 048
  6. ACTIVASE [Suspect]
     Active Substance: ALTEPLASE
     Indication: ACUTE MYOCARDIAL INFARCTION
     Route: 040
  7. DULCOLAX (BISACODYL) [Concomitant]
     Active Substance: BISACODYL
     Route: 065
  8. ATROPINE. [Concomitant]
     Active Substance: ATROPINE
     Dosage: 0.5-1 MG
     Route: 042
  9. ACTIVASE [Suspect]
     Active Substance: ALTEPLASE
     Route: 065
  10. LIDOCAINE DRIP [Concomitant]
     Route: 065
  11. MORPHINE [Concomitant]
     Active Substance: MORPHINE
     Route: 042
  12. ACTIVASE [Suspect]
     Active Substance: ALTEPLASE
     Route: 065
  13. COMPAZINE [Concomitant]
     Active Substance: PROCHLORPERAZINE MALEATE
     Route: 065
  14. TYLENOL [Concomitant]
     Active Substance: ACETAMINOPHEN
     Route: 048

REACTIONS (1)
  - Treatment failure [Unknown]
